FAERS Safety Report 8500740 (Version 3)
Quarter: 2013Q1

REPORT INFORMATION
  Report Type: Report from Study
  Country: US (occurrence: US)
  Receive Date: 20120410
  Receipt Date: 20130327
  Transmission Date: 20140127
  Serious: Yes (Hospitalization)
  Sender: FDA-Public Use
  Company Number: US-BIOGENIDEC-2012BI010518

PATIENT
  Age: 40 Year
  Sex: Female

DRUGS (7)
  1. TYSABRI [Suspect]
     Indication: MULTIPLE SCLEROSIS
     Route: 042
     Dates: start: 20080117
  2. BUPROPION HCL [Concomitant]
     Route: 048
  3. CLONAZEPAM [Concomitant]
     Route: 048
  4. IBUPROFEN [Concomitant]
     Indication: PAIN
     Route: 048
     Dates: start: 20080729
  5. PRISTIQ [Concomitant]
     Route: 048
  6. TOPAMAX [Concomitant]
     Route: 048
  7. TRAZODONE HCL [Concomitant]
     Route: 048

REACTIONS (1)
  - Osteoarthritis [Recovered/Resolved]
